FAERS Safety Report 9433392 (Version 1)
Quarter: 2013Q3

REPORT INFORMATION
  Report Type: Spontaneous
  Country: US (occurrence: US)
  Receive Date: 20130731
  Receipt Date: 20130731
  Transmission Date: 20140515
  Serious: Yes (Death, Hospitalization)
  Sender: FDA-Public Use
  Company Number: US-B.I. PHARMACEUTICALS,INC./RIDGEFIELD-2013-BI-22287BP

PATIENT
  Sex: Female

DRUGS (2)
  1. PRADAXA [Suspect]
     Indication: ATRIAL FIBRILLATION
     Dosage: 300 MG
     Dates: start: 20120314
  2. PRADAXA [Suspect]
     Dosage: 150 MG
     Dates: start: 20120801

REACTIONS (4)
  - Brain oedema [Fatal]
  - Cerebrovascular accident [Fatal]
  - Atrial fibrillation [Fatal]
  - Lower gastrointestinal haemorrhage [Unknown]
